FAERS Safety Report 9007913 (Version 1)
Quarter: 2013Q1

REPORT INFORMATION
  Report Type: Spontaneous
  Country: US (occurrence: US)
  Receive Date: 20130111
  Receipt Date: 20130111
  Transmission Date: 20140127
  Serious: Yes (Other)
  Sender: FDA-Public Use
  Company Number: US-009507513-0911USA00612

PATIENT
  Age: 19 Year
  Sex: Male
  Weight: 68.39 kg

DRUGS (2)
  1. SINGULAIR [Suspect]
     Indication: SEASONAL ALLERGY
     Dosage: 10 MG, QD
     Route: 048
     Dates: start: 20090305, end: 20090412
  2. SINGULAIR [Suspect]
     Dosage: 10 MG, QD
     Route: 048
     Dates: end: 200804

REACTIONS (4)
  - Negativism [Unknown]
  - Depression [Unknown]
  - Social avoidant behaviour [Unknown]
  - Suicidal ideation [Unknown]
